FAERS Safety Report 17886178 (Version 1)
Quarter: 2020Q2

REPORT INFORMATION
  Report Type: Spontaneous
  Country: US (occurrence: US)
  Receive Date: 20200611
  Receipt Date: 20200611
  Transmission Date: 20200714
  Serious: Yes (Other)
  Sender: FDA-Public Use
  Company Number: US-PFIZER INC-2020226162

PATIENT
  Age: 41 Year
  Sex: Male
  Weight: 106.59 kg

DRUGS (2)
  1. CELEBREX [Suspect]
     Active Substance: CELECOXIB
     Indication: ARTHRITIS
  2. CELEBREX [Suspect]
     Active Substance: CELECOXIB
     Indication: GAIT DISTURBANCE
     Dosage: 200 MG, 2X/DAY
     Route: 048

REACTIONS (4)
  - Blindness [Unknown]
  - Eye inflammation [Unknown]
  - Therapeutic product effect delayed [Unknown]
  - Uveitis [Unknown]

NARRATIVE: CASE EVENT DATE: 200201
